FAERS Safety Report 14149974 (Version 2)
Quarter: 2017Q4

REPORT INFORMATION
  Report Type: Report from Study
  Country: US (occurrence: US)
  Receive Date: 20171101
  Receipt Date: 20171121
  Transmission Date: 20180321
  Serious: Yes (Hospitalization)
  Sender: FDA-Public Use
  Company Number: US-ACTELION-A-US2017-161576

PATIENT
  Age: 77 Year
  Sex: Female

DRUGS (12)
  1. LEVOTHYROXINE SODIUM. [Concomitant]
     Active Substance: LEVOTHYROXINE SODIUM
     Dosage: 100 MCG, QD
     Route: 048
  2. ACETAMINOPHEN. [Concomitant]
     Active Substance: ACETAMINOPHEN
     Dosage: 500 MG, UNK
  3. METOPROLOL SUCCINATE. [Concomitant]
     Active Substance: METOPROLOL SUCCINATE
     Dosage: 25 MG, Q12HRS
  4. NAPROXEN. [Concomitant]
     Active Substance: NAPROXEN
     Dosage: 250 MG, QD
  5. OMEPRAZOLE. [Concomitant]
     Active Substance: OMEPRAZOLE
  6. OPSUMIT [Suspect]
     Active Substance: MACITENTAN
     Indication: PRODUCT USED FOR UNKNOWN INDICATION
     Dosage: 10 MG, QD
     Route: 048
     Dates: start: 20170420
  7. BUMETANIDE. [Concomitant]
     Active Substance: BUMETANIDE
     Dosage: UNK
     Dates: start: 20170725
  8. LORAZEPAM. [Concomitant]
     Active Substance: LORAZEPAM
     Dosage: 0.5 MG, Q12HRS
     Route: 048
  9. TRAZODONE HYDROCHLORIDE. [Concomitant]
     Active Substance: TRAZODONE HYDROCHLORIDE
     Dosage: 50 MG, QPM
     Route: 048
  10. VENTOLIN [Concomitant]
     Active Substance: ALBUTEROL SULFATE
     Dosage: 90 MCG, UNK
     Route: 045
  11. ZADITOR [Concomitant]
     Active Substance: KETOTIFEN FUMARATE
     Dosage: UNK, Q12HRS
  12. ASPIRIN. [Concomitant]
     Active Substance: ASPIRIN

REACTIONS (2)
  - Seizure like phenomena [Unknown]
  - Mental disorder [Unknown]

NARRATIVE: CASE EVENT DATE: 20171014
